FAERS Safety Report 10790570 (Version 4)
Quarter: 2015Q4

REPORT INFORMATION
  Report Type: Spontaneous
  Country: PT (occurrence: PT)
  Receive Date: 20150212
  Receipt Date: 20151006
  Transmission Date: 20160304
  Serious: Yes (Disabling, Other)
  Sender: FDA-Public Use
  Company Number: PT-GLAXOSMITHKLINE-PT2015GSK016071

PATIENT
  Age: 70 Year
  Sex: Male
  Weight: 75 kg

DRUGS (17)
  1. AVODART [Concomitant]
     Active Substance: DUTASTERIDE
     Indication: BENIGN PROSTATIC HYPERPLASIA
     Dosage: 0.5 MG, QD
     Route: 048
     Dates: start: 2012
  2. EDRONAX [Suspect]
     Active Substance: REBOXETINE MESYLATE
     Indication: DEPRESSION
     Dosage: 4 MG, QD
     Route: 048
     Dates: start: 20150106
  3. FLUDEX (INDAPAMIDE) [Concomitant]
     Indication: HYPERTENSION
     Dosage: 2.5 MG, QD
     Route: 048
     Dates: start: 2005
  4. DIAMICRON LM [Concomitant]
     Indication: DIABETES MELLITUS
     Dosage: 60 MG, QD
     Route: 048
     Dates: start: 2010
  5. FLUDEX [Concomitant]
     Active Substance: INDAPAMIDE
     Indication: HYPERTENSION
     Dosage: 2.5 MG, QD
     Route: 048
     Dates: start: 2005
  6. ELONTRIL [Suspect]
     Active Substance: BUPROPION HYDROCHLORIDE
     Indication: DEPRESSION
     Dosage: 300 MG, QD
     Route: 048
     Dates: start: 20150106
  7. SOCIAN [Concomitant]
     Active Substance: AMISULPRIDE
     Indication: ASTHENIA
     Dosage: 25 MG, QD
     Route: 048
     Dates: start: 201411
  8. TRITICUM [Concomitant]
     Indication: POOR QUALITY SLEEP
     Dosage: 50 MG, QD
     Route: 048
     Dates: start: 2005
  9. PRACET [Concomitant]
     Indication: DEPRESSION
     Dosage: 225 MG, QD
     Route: 048
     Dates: start: 2011
  10. COVERSYL [Concomitant]
     Active Substance: PERINDOPRIL
     Indication: HYPERTENSION
     Dosage: 10 MG, QD
     Route: 048
     Dates: start: 2008
  11. AMISULPRIDE [Concomitant]
     Active Substance: AMISULPRIDE
     Indication: ASTHENIA
     Dosage: 25 MG, QD
     Route: 048
     Dates: start: 201411
  12. VENLAFAXINE HYDROCHLORIDE. [Concomitant]
     Active Substance: VENLAFAXINE HYDROCHLORIDE
     Indication: DEPRESSION
     Dosage: 225 MG, QD
     Route: 048
     Dates: start: 2011
  13. LAMOTRIGINE. [Concomitant]
     Active Substance: LAMOTRIGINE
     Indication: DEPRESSION
     Dosage: 25 MG, 1D
     Route: 048
     Dates: start: 2011
  14. LAMOTRIGINE. [Concomitant]
     Active Substance: LAMOTRIGINE
     Dosage: 50 MG, QD
     Route: 048
  15. ELONTRIL [Suspect]
     Active Substance: BUPROPION HYDROCHLORIDE
     Dosage: 150 MG, QD
     Route: 048
     Dates: start: 20150106
  16. HYPERIUM [Concomitant]
     Active Substance: RILMENIDINE PHOSPHATE
     Indication: HYPERTENSION
     Dosage: 10 MG, QD
     Route: 048
     Dates: start: 2006
  17. LAMOTRIGINE. [Concomitant]
     Active Substance: LAMOTRIGINE
     Dosage: 50 MG, QD
     Route: 048

REACTIONS (7)
  - Gait disturbance [Recovered/Resolved]
  - Confusional state [Recovered/Resolved]
  - Fall [Recovered/Resolved]
  - Dizziness [Recovered/Resolved]
  - Parkinsonism [Recovered/Resolved]
  - Tremor [Recovered/Resolved]
  - Vertigo [Recovered/Resolved]

NARRATIVE: CASE EVENT DATE: 201501
